FAERS Safety Report 8341605 (Version 26)
Quarter: 2014Q2

REPORT INFORMATION
  Report Type: Report from Study
  Country: CA (occurrence: CA)
  Receive Date: 20120118
  Receipt Date: 20140630
  Transmission Date: 20141212
  Serious: Yes (Other)
  Sender: FDA-Public Use
  Company Number: PHHY2012CA002872

PATIENT
  Age: 85 Year
  Sex: Female
  Weight: 57 kg

DRUGS (8)
  1. SANDOSTATIN LAR [Suspect]
     Indication: CARCINOID TUMOUR
     Dosage: 30 MG, QMO EVERY 4 WEEKS
     Route: 030
     Dates: start: 20090601
  2. NORVASC [Concomitant]
     Dosage: UNK UKN, UNK
  3. NORVASC [Concomitant]
     Dosage: 0.5 DF, DAILY
  4. INDAPAMIDE [Concomitant]
     Dosage: UNK UKN, UNK
  5. HYDROCHLOROTHIAZIDE [Concomitant]
     Dosage: UNK UKN, UNK
  6. RADIOTHERAPY [Concomitant]
     Dosage: UNK UKN, UNK
  7. AMLODIPINE [Concomitant]
     Dosage: 0.5 DF, UNK
  8. ALPRAZOLAM [Concomitant]
     Dosage: 0.25 MG, QD

REACTIONS (26)
  - Intervertebral disc degeneration [Unknown]
  - Bronchitis [Unknown]
  - Gout [Unknown]
  - Syncope [Unknown]
  - Palpitations [Unknown]
  - Biliary tract infection [Unknown]
  - Blood pressure decreased [Not Recovered/Not Resolved]
  - Blood pressure increased [Unknown]
  - Restless legs syndrome [Unknown]
  - Muscular weakness [Not Recovered/Not Resolved]
  - Anxiety [Recovering/Resolving]
  - Fall [Unknown]
  - Contusion [Unknown]
  - Oedema peripheral [Unknown]
  - Tremor [Unknown]
  - Pallor [Recovering/Resolving]
  - Weight decreased [Unknown]
  - Emotional distress [Recovering/Resolving]
  - Lower respiratory tract infection [Unknown]
  - Nasopharyngitis [Unknown]
  - Lip dry [Unknown]
  - Stress [Unknown]
  - Mood altered [Unknown]
  - Needle issue [Unknown]
  - Wrong technique in drug usage process [Unknown]
  - Fatigue [Unknown]
